FAERS Safety Report 8442681-1 (Version None)
Quarter: 2012Q2

REPORT INFORMATION
  Report Type: 
  Country: None (occurrence: None)
  Receive Date: 20120615
  Receipt Date: 20111202
  Transmission Date: 20120825
  Serious: No
  Sender: FDA-Public Use
  Company Number: US-NOVEN-11US003729

PATIENT
  Age: 22 Year
  Sex: Male
  Weight: 63.492 kg

DRUGS (2)
  1. DAYTRANA [Suspect]
     Indication: ATTENTION DEFICIT/HYPERACTIVITY DISORDER
     Dosage: 30 MG, QD
  2. FOCALIN [Concomitant]
     Indication: PSYCHOMOTOR HYPERACTIVITY
     Dosage: 10-30 MG
     Route: 048

REACTIONS (2)
  - NO ADVERSE EVENT [None]
  - OFF LABEL USE [None]
